FAERS Safety Report 9523243 (Version 2)
Quarter: 2013Q3

REPORT INFORMATION
  Report Type: Report from Study
  Country: FR (occurrence: FR)
  Receive Date: 20130913
  Receipt Date: 20130924
  Transmission Date: 20140515
  Serious: Yes (Death, Other)
  Sender: FDA-Public Use
  Company Number: PHHO2013FR011823

PATIENT
  Sex: 0

DRUGS (1)
  1. AFINITOR [Suspect]
     Indication: RENAL CANCER METASTATIC
     Dosage: 10 MG, QD
     Route: 048
     Dates: start: 20130802, end: 20130827

REACTIONS (1)
  - General physical health deterioration [Fatal]
